FAERS Safety Report 13904985 (Version 4)
Quarter: 2017Q3

REPORT INFORMATION
  Report Type: Spontaneous
  Country: CN (occurrence: CN)
  Receive Date: 20170825
  Receipt Date: 20170927
  Transmission Date: 20171127
  Serious: Yes (Death)
  Sender: FDA-Public Use
  Company Number: CN-ASTRAZENECA-2017SE86444

PATIENT
  Age: 39 Year
  Sex: Male

DRUGS (8)
  1. HEPARIN CALCIUM [Concomitant]
     Active Substance: HEPARIN CALCIUM
     Dosage: 1ML H BID
  2. BETALOC [Suspect]
     Active Substance: METOPROLOL TARTRATE
     Route: 048
  3. POTASSIUM CHLORIDE. [Concomitant]
     Active Substance: POTASSIUM CHLORIDE
     Dosage: 5ML INTRAVENOUS DRIP QD WITH THE SPREAD OF 30 DRIPS PER MINUTE
     Route: 012
  4. BRILINTA [Suspect]
     Active Substance: TICAGRELOR
     Indication: PERCUTANEOUS CORONARY INTERVENTION
     Route: 048
  5. ENALAPRIL MALEATE. [Concomitant]
     Active Substance: ENALAPRIL MALEATE
     Route: 048
  6. GLUCOSE INJECTION [Concomitant]
     Active Substance: DEXTROSE
     Dosage: 5PERCENT GLUCOSE INJECTION 250ML,QD, 30GTT PER MINUTE.
     Route: 042
  7. ASPIRIN. [Concomitant]
     Active Substance: ASPIRIN
     Route: 048
  8. ATORVASTATIN CALCIUM. [Concomitant]
     Active Substance: ATORVASTATIN CALCIUM
     Route: 048

REACTIONS (1)
  - Cerebral haemorrhage [Fatal]
